FAERS Safety Report 12437298 (Version 2)
Quarter: 2016Q3

REPORT INFORMATION
  Report Type: Spontaneous
  Country: IL (occurrence: IL)
  Receive Date: 20160606
  Receipt Date: 20160707
  Transmission Date: 20161109
  Serious: Yes (Other)
  Sender: FDA-Public Use
  Company Number: IL-BAXTER-2016BAX028448

PATIENT
  Age: 57 Year
  Sex: Female

DRUGS (8)
  1. NACL 0.9% USP [Suspect]
     Active Substance: SODIUM CHLORIDE
     Indication: MEDICATION DILUTION
     Dosage: WITH PERJETAL, 0.9% 250 ML VIAFLO NP
     Route: 042
     Dates: start: 20160518, end: 20160518
  2. NACL 0.9% USP [Suspect]
     Active Substance: SODIUM CHLORIDE
     Dosage: WITH PACLITAXEL, 0.9% 250 ML VIAFLO NP
     Route: 042
     Dates: start: 20160518, end: 20160518
  3. PERJETA [Suspect]
     Active Substance: PERTUZUMAB
     Indication: BREAST CANCER
     Dosage: 420 MG/ 14 ML
     Route: 042
     Dates: start: 20160518, end: 20160518
  4. TAXOL [Suspect]
     Active Substance: PACLITAXEL
     Dosage: 100 MG/16.7 ML
     Route: 042
     Dates: start: 20160525, end: 20160525
  5. NACL 0.9% USP [Suspect]
     Active Substance: SODIUM CHLORIDE
     Dosage: WITH PACLITAXEL, 0.9% 250 ML VIAFLO NP
     Route: 042
     Dates: start: 20160525, end: 20160525
  6. TAXOL [Suspect]
     Active Substance: PACLITAXEL
     Indication: BREAST CANCER
     Dosage: 100 MG/16.7 ML
     Route: 042
     Dates: start: 20160518, end: 20160518
  7. HERCEPTIN [Suspect]
     Active Substance: TRASTUZUMAB
     Indication: BREAST CANCER
     Route: 065
  8. TAXOL [Suspect]
     Active Substance: PACLITAXEL
     Dosage: 30 MG/5 ML
     Route: 042
     Dates: start: 20160525, end: 20160525

REACTIONS (1)
  - Diarrhoea [Recovered/Resolved]

NARRATIVE: CASE EVENT DATE: 201605
